FAERS Safety Report 5379403-7 (Version None)
Quarter: 2007Q3

REPORT INFORMATION
  Report Type: 
  Country: None (occurrence: None)
  Receive Date: 20070703
  Receipt Date: 20070619
  Transmission Date: 20080115
  Serious: Yes (Other)
  Sender: FDA-Public Use
  Company Number: 2007S1005497

PATIENT
  Age: 43 Year
  Sex: Female
  Weight: 83.4619 kg

DRUGS (7)
  1. FENTANY TRANSDERMAL SYSTEM (25 UG/HR) [Suspect]
     Indication: ABDOMINAL PAIN
     Dosage: 25 UG/HR; EVERY 3 DAYS; TRANSDERMAL
     Route: 062
     Dates: start: 20070501, end: 20070606
  2. FENTANY TRANSDERMAL SYSTEM (25 UG/HR) [Suspect]
     Indication: ABDOMINAL PAIN
     Dosage: 25 UG/HR; EVERY 3 DAYS; TRANSDERMAL
     Route: 062
     Dates: start: 20070613
  3. ZEGERID (CON.0 [Concomitant]
  4. LEVBID (CON.) [Concomitant]
  5. AMITRIPTYLINE (CON.) [Concomitant]
  6. REGLAN /00041901/ (CON.) [Concomitant]
  7. ERYTHROMYCIN (CON.) [Concomitant]

REACTIONS (4)
  - DISEASE RECURRENCE [None]
  - DRUG INEFFECTIVE [None]
  - DRUG INTERACTION [None]
  - PAIN [None]
